FAERS Safety Report 20145327 (Version 1)
Quarter: 2021Q4

REPORT INFORMATION
  Report Type: Spontaneous
  Country: ES (occurrence: ES)
  Receive Date: 20211203
  Receipt Date: 20211203
  Transmission Date: 20220303
  Serious: Yes (Other)
  Sender: FDA-Public Use
  Company Number: ES-COLLEGIUM PHARMACEUTICAL, INC.-2021CGM01250

PATIENT
  Sex: Male

DRUGS (1)
  1. TAPENTADOL [Suspect]
     Active Substance: TAPENTADOL
     Indication: Back pain
     Dosage: UNK
     Route: 048
     Dates: start: 2021

REACTIONS (2)
  - Periorbital oedema [Recovered/Resolved]
  - Drug hypersensitivity [Recovered/Resolved]

NARRATIVE: CASE EVENT DATE: 20210101
